FAERS Safety Report 15778737 (Version 2)
Quarter: 2019Q1

REPORT INFORMATION
  Report Type: Spontaneous
  Country: US (occurrence: US)
  Receive Date: 20190101
  Receipt Date: 20190313
  Transmission Date: 20190417
  Serious: Yes (Other)
  Sender: FDA-Public Use
  Company Number: US-ROCHE-2238029

PATIENT
  Sex: Female

DRUGS (1)
  1. OCREVUS [Suspect]
     Active Substance: OCRELIZUMAB
     Indication: PROGRESSIVE MULTIPLE SCLEROSIS
     Route: 065

REACTIONS (5)
  - Multiple sclerosis [Unknown]
  - Ear pain [Unknown]
  - Cough [Unknown]
  - Headache [Unknown]
  - Oropharyngeal pain [Unknown]
